FAERS Safety Report 12139750 (Version 1)
Quarter: 2016Q1

REPORT INFORMATION
  Report Type: Spontaneous
  Country: KR (occurrence: KR)
  Receive Date: 20160303
  Receipt Date: 20160303
  Transmission Date: 20160526
  Serious: Yes (Hospitalization)
  Sender: FDA-Public Use
  Company Number: KR-AMGEN-KORCT2016025705

PATIENT
  Age: 68 Year
  Sex: Male

DRUGS (6)
  1. DOXORUBICIN [Concomitant]
     Active Substance: DOXORUBICIN
     Dosage: 62 MG, UNK
     Route: 042
     Dates: start: 20151117, end: 20151117
  2. G-LASTA [Suspect]
     Active Substance: PEGFILGRASTIM
     Indication: FEBRILE NEUTROPENIA
     Dosage: 6 MG, Q3WK
     Route: 058
     Dates: start: 20151119
  3. CYCLOPHOSPHAMIDE. [Concomitant]
     Active Substance: CYCLOPHOSPHAMIDE
     Dosage: 935 MG, UNK
     Route: 042
     Dates: start: 20151117, end: 20151117
  4. RITUXIMAB [Concomitant]
     Active Substance: RITUXIMAB
     Dosage: 585 MG, UNK
     Route: 042
     Dates: start: 20151117, end: 20151117
  5. VINCRISTINE [Concomitant]
     Active Substance: VINCRISTINE
     Dosage: 1.75 MG, UNK
     Route: 042
     Dates: start: 20151117, end: 20151117
  6. PREDNISOLONE. [Concomitant]
     Active Substance: PREDNISOLONE
     Dosage: 100 MG, UNK
     Route: 048
     Dates: start: 20151117, end: 20151121

REACTIONS (1)
  - Pyrexia [Recovered/Resolved]

NARRATIVE: CASE EVENT DATE: 20151128
